FAERS Safety Report 6567698-3 (Version None)
Quarter: 2010Q1

REPORT INFORMATION
  Report Type: 
  Country: None (occurrence: None)
  Receive Date: 20100203
  Receipt Date: 20100121
  Transmission Date: 20100710
  Serious: Yes (Hospitalization)
  Sender: FDA-Public Use
  Company Number: DE-RANBAXY-2009RR-30200

PATIENT
  Age: 75 Year
  Sex: Male
  Weight: 71 kg

DRUGS (14)
  1. CLINDAMYCIN [Suspect]
     Indication: GOUTY TOPHUS
     Dosage: 600 MG, TID
     Route: 048
     Dates: start: 20090731, end: 20090802
  2. CLINDAMYCIN [Suspect]
     Indication: LOCALISED INFECTION
  3. OMEPRAZOLE [Suspect]
     Indication: HELICOBACTER GASTRITIS
     Dosage: 40 MG, QD
     Route: 048
     Dates: start: 20060901
  4. FALITHROM [Concomitant]
     Indication: TACHYARRHYTHMIA
     Dosage: UNK
     Route: 048
     Dates: start: 20061001, end: 20090827
  5. ACETYLSALICYLIC ACID [Concomitant]
     Indication: CORONARY ARTERY DISEASE
     Dosage: 100 MG, QD
     Route: 048
     Dates: start: 20090201
  6. DIGITOXIN INJ [Concomitant]
     Indication: ATRIAL FIBRILLATION
     Dosage: 0.07 MG, QD
     Route: 048
     Dates: start: 20061001
  7. BISOPROLOL [Concomitant]
     Indication: HYPERTENSION
     Dosage: 5 MG, QD
     Route: 048
     Dates: start: 20090201
  8. DIOVAN [Concomitant]
     Indication: HYPERTENSION
     Dosage: 80 MG, QD
     Route: 048
     Dates: start: 20060901
  9. TORSEMIDE [Concomitant]
     Indication: RENAL FAILURE CHRONIC
     Dosage: 5 MG, QD
     Route: 048
     Dates: start: 20090201, end: 20090827
  10. ALLOPURINOL [Concomitant]
     Indication: GOUTY ARTHRITIS
     Dosage: 100 MG, QD
     Route: 048
     Dates: start: 20090701
  11. SIMVASTATIN [Concomitant]
     Indication: CORONARY ARTERY DISEASE
     Dosage: 40 MG, QD
     Route: 048
     Dates: start: 20090201
  12. TREVILOR [Concomitant]
     Indication: DEPRESSION
     Dosage: 150 MG, UNK
     Route: 048
     Dates: start: 20060901
  13. TREVILOR [Concomitant]
     Dosage: 75 MG, UNK
     Route: 048
  14. COLCHYSAT [Concomitant]
     Indication: GOUTY ARTHRITIS
     Dosage: 0.5 MG, TID
     Route: 048
     Dates: start: 20090731, end: 20090802

REACTIONS (2)
  - CLOSTRIDIUM DIFFICILE COLITIS [None]
  - DRUG INTERACTION [None]
